FAERS Safety Report 24554080 (Version 1)
Quarter: 2024Q4

REPORT INFORMATION
  Report Type: Spontaneous
  Country: US (occurrence: US)
  Receive Date: 20241028
  Receipt Date: 20241028
  Transmission Date: 20250114
  Serious: No
  Sender: ALEXION PHARMACEUTICALS
  Company Number: US-AstraZeneca-CH-00724209A

PATIENT

DRUGS (1)
  1. CALQUENCE [Suspect]
     Active Substance: ACALABRUTINIB

REACTIONS (5)
  - Insomnia [Unknown]
  - Enuresis [Unknown]
  - Bladder discomfort [Unknown]
  - Dry throat [Unknown]
  - Cancer in remission [Unknown]
